FAERS Safety Report 6043164 (Version 22)
Quarter: 2013Q2

REPORT INFORMATION
  Report Type: Spontaneous
  Country: US (occurrence: US)
  Receive Date: 20060511
  Receipt Date: 20130422
  Transmission Date: 20140414
  Serious: Yes (Hospitalization, Other)
  Sender: FDA-Public Use
  Company Number: PHEH2006US05803

PATIENT
  Age: 59 Year
  Sex: Female
  Weight: 75.74 kg

DRUGS (37)
  1. AREDIA [Suspect]
     Indication: BREAST CANCER METASTATIC
     Dosage: 90 MG, QW3
     Dates: start: 1998
  2. ZOMETA [Suspect]
     Indication: BREAST CANCER METASTATIC
     Dates: start: 1998
  3. XELODA [Suspect]
  4. TAXOL [Concomitant]
     Indication: BREAST CANCER METASTATIC
     Dates: start: 200007, end: 200012
  5. TAXOL [Concomitant]
     Dates: start: 200502
  6. HERCEPTIN [Concomitant]
     Indication: BREAST CANCER METASTATIC
     Dates: start: 200007, end: 200012
  7. HERCEPTIN [Concomitant]
     Dates: start: 200502
  8. RADIATION THERAPY [Concomitant]
     Indication: BREAST CANCER METASTATIC
  9. TAMOXIFEN [Concomitant]
     Dosage: 20 MG, QD
     Route: 048
     Dates: start: 1998
  10. SYNTHROID [Concomitant]
     Indication: HYPOTHYROIDISM
     Dosage: 0.1 MG, QD
     Route: 048
  11. LIPITOR /UNK/ [Concomitant]
     Dosage: 10 MG, QD
     Route: 048
  12. PRILOSEC [Concomitant]
     Dosage: 20 MG, QD
     Route: 048
  13. VITAMIN E [Concomitant]
     Dosage: 400 IU, QD
     Route: 048
  14. CALCIUM [Concomitant]
     Dosage: 600 MG, QD
     Route: 048
  15. AROMASIN [Concomitant]
     Dosage: 25 MG, QD
     Route: 048
  16. COUMADIN [Concomitant]
     Dosage: 1 MG, QD
     Route: 048
  17. NORVASC                                 /DEN/ [Concomitant]
  18. ACIPHEX [Concomitant]
  19. WARFARIN [Concomitant]
  20. LISINOPRIL [Concomitant]
  21. MEVACOR [Concomitant]
     Indication: BLOOD CHOLESTEROL INCREASED
  22. ZESTRIL [Concomitant]
     Indication: HYPERTENSION
     Dosage: 5 MG,
  23. TORADOL [Concomitant]
  24. DEMEROL [Concomitant]
  25. DARVOCET-N [Concomitant]
  26. COMPAZINE [Concomitant]
  27. DALMANE [Concomitant]
  28. VISTARIL [Concomitant]
  29. PREMARIN                                /NEZ/ [Concomitant]
  30. PROVERA [Concomitant]
  31. MIDRIN [Concomitant]
  32. NITROGLYCERIN ^A.L.^ [Concomitant]
  33. DIGOXIN [Concomitant]
  34. ZOFRAN [Concomitant]
  35. PLAVIX [Concomitant]
  36. COREG [Concomitant]
  37. PRINIVIL [Concomitant]

REACTIONS (111)
  - Electrocardiogram QT prolonged [Recovering/Resolving]
  - Chest pain [Unknown]
  - Syncope [Unknown]
  - Dizziness [Recovering/Resolving]
  - Road traffic accident [Unknown]
  - Vasospasm [Unknown]
  - Cardiomyopathy [Unknown]
  - Angina unstable [Unknown]
  - Loss of consciousness [Unknown]
  - Bundle branch block left [Unknown]
  - Aortic valve incompetence [Unknown]
  - Recurrent cancer [Unknown]
  - Mass [Unknown]
  - Gallbladder disorder [Unknown]
  - Osteonecrosis of jaw [Recovering/Resolving]
  - Gingival pain [Unknown]
  - Gingival bleeding [Unknown]
  - Gingival swelling [Unknown]
  - Gingival hyperplasia [Unknown]
  - Gingival inflammation [Unknown]
  - Impaired healing [Unknown]
  - Bone disorder [Unknown]
  - Oral discomfort [Unknown]
  - Bruxism [Unknown]
  - Tooth fracture [Unknown]
  - Dysgeusia [Unknown]
  - Paraesthesia [Unknown]
  - Toothache [Unknown]
  - Pain in jaw [Unknown]
  - Bone swelling [Unknown]
  - Erythema [Unknown]
  - Primary sequestrum [Unknown]
  - Injury [Unknown]
  - Pain [Unknown]
  - Anxiety [Unknown]
  - Pulmonary mass [Unknown]
  - Pleural effusion [Unknown]
  - Metastases to bone [Unknown]
  - Laryngeal oedema [Unknown]
  - Hypocalcaemia [Unknown]
  - Muscle spasms [Unknown]
  - Biliary colic [Unknown]
  - Vocal cord disorder [Unknown]
  - Rib fracture [Unknown]
  - Spinal osteoarthritis [Unknown]
  - Pericardial effusion [Unknown]
  - Arteriosclerosis [Unknown]
  - Renal cyst [Unknown]
  - Oedema peripheral [Unknown]
  - Dental caries [Unknown]
  - Osteoradionecrosis [Unknown]
  - Ventricular arrhythmia [Unknown]
  - Upper respiratory tract infection [Recovering/Resolving]
  - Superior vena cava syndrome [Recovered/Resolved]
  - Cardiac murmur [Unknown]
  - Oral herpes [Unknown]
  - Dry mouth [Unknown]
  - Metastases to liver [Unknown]
  - Lung disorder [Unknown]
  - Lung consolidation [Unknown]
  - Pleural fibrosis [Unknown]
  - Pleural calcification [Unknown]
  - Pulmonary hypertension [Unknown]
  - Cardiac failure congestive [Unknown]
  - Hypothyroidism [Unknown]
  - Atrial flutter [Unknown]
  - Left ventricular hypertrophy [Unknown]
  - Left ventricular dysfunction [Unknown]
  - Aortic valve stenosis [Unknown]
  - Ventricular tachycardia [Unknown]
  - Vaginal prolapse [Unknown]
  - Restrictive pulmonary disease [Unknown]
  - Arteriospasm coronary [Unknown]
  - Neutropenia [Unknown]
  - Dysuria [Unknown]
  - Dyspnoea [Unknown]
  - Osteomyelitis [Unknown]
  - Lymphadenopathy [Unknown]
  - Vertigo positional [Unknown]
  - Cardiotoxicity [Unknown]
  - Aphthous stomatitis [Unknown]
  - Breath sounds absent [Unknown]
  - Arthropod bite [Unknown]
  - Wheezing [Unknown]
  - Chronic obstructive pulmonary disease [Unknown]
  - Osteoarthritis [Unknown]
  - Arrhythmia supraventricular [Unknown]
  - Cholelithiasis [Unknown]
  - Rectocele [Unknown]
  - Enterocele [Unknown]
  - Bronchitis [Unknown]
  - Conjunctivitis [Unknown]
  - Memory impairment [Unknown]
  - Epistaxis [Unknown]
  - Migraine [Unknown]
  - Pancytopenia [Unknown]
  - Hiatus hernia [Unknown]
  - Asthma [Unknown]
  - Stress fracture [Unknown]
  - Leukocytosis [Unknown]
  - Pneumonia [Unknown]
  - Foot deformity [Unknown]
  - Osteosclerosis [Unknown]
  - Osteolysis [Unknown]
  - Atelectasis [Unknown]
  - Foot fracture [Unknown]
  - Hepatic lesion [Unknown]
  - Balance disorder [Unknown]
  - Deafness [Unknown]
  - Metastases to lung [Unknown]
  - Malignant neoplasm progression [Unknown]
